FAERS Safety Report 20043224 (Version 1)
Quarter: 2021Q4

REPORT INFORMATION
  Report Type: Spontaneous
  Country: US (occurrence: US)
  Receive Date: 20211108
  Receipt Date: 20211108
  Transmission Date: 20220303
  Serious: No
  Sender: FDA-Public Use
  Company Number: US-TEVA-2021-US-1971895

PATIENT
  Age: 78 Year
  Sex: Female

DRUGS (1)
  1. ALBUTEROL SULFATE [Suspect]
     Active Substance: ALBUTEROL SULFATE
     Indication: Dyspnoea
     Dosage: 1 TO 2 PUFFS EVERY 4 TO 6 HOURS
     Route: 065

REACTIONS (4)
  - Feeling abnormal [Unknown]
  - Device delivery system issue [Unknown]
  - Product formulation issue [Unknown]
  - Device use issue [Unknown]
